FAERS Safety Report 14735503 (Version 2)
Quarter: 2018Q2

REPORT INFORMATION
  Report Type: Spontaneous
  Country: PE (occurrence: PE)
  Receive Date: 20180409
  Receipt Date: 20180430
  Transmission Date: 20180711
  Serious: Yes (Death, Other)
  Sender: FDA-Public Use
  Company Number: PE-JNJFOC-20180402237

PATIENT
  Age: 57 Year
  Sex: Male
  Weight: 40 kg

DRUGS (11)
  1. PYRAZINAMIDE. [Suspect]
     Active Substance: PYRAZINAMIDE
     Indication: TUBERCULOSIS
     Route: 048
     Dates: start: 20170816, end: 20180329
  2. SIRTURO [Suspect]
     Active Substance: BEDAQUILINE FUMARATE
     Indication: TUBERCULOSIS
     Route: 048
     Dates: start: 20170816
  3. CYCLOSERINE. [Suspect]
     Active Substance: CYCLOSERINE
     Indication: TUBERCULOSIS
     Route: 048
     Dates: start: 20170816, end: 20180329
  4. CLOFAZIMINE [Suspect]
     Active Substance: CLOFAZIMINE
     Indication: TUBERCULOSIS
     Route: 048
     Dates: start: 20170816
  5. LINEZOLID. [Suspect]
     Active Substance: LINEZOLID
     Indication: TUBERCULOSIS
     Route: 048
     Dates: start: 20170816, end: 20180320
  6. LEVOFLOXACIN. [Suspect]
     Active Substance: LEVOFLOXACIN
     Indication: TUBERCULOSIS
     Route: 048
     Dates: start: 20170816, end: 20180329
  7. SIRTURO [Suspect]
     Active Substance: BEDAQUILINE FUMARATE
     Indication: TUBERCULOSIS
     Route: 048
     Dates: end: 20180131
  8. CAPREOMYCIN [Suspect]
     Active Substance: CAPREOMYCIN
     Indication: TUBERCULOSIS
     Route: 030
     Dates: start: 20170816, end: 20180328
  9. CLOFAZIMINE [Suspect]
     Active Substance: CLOFAZIMINE
     Indication: TUBERCULOSIS
     Route: 048
     Dates: end: 20180329
  10. PYRIDOXIN [Concomitant]
     Active Substance: PYRIDOXINE
     Indication: PROPHYLAXIS
     Route: 048
     Dates: start: 20170816, end: 20180329
  11. ETHAMBUTOL [Suspect]
     Active Substance: ETHAMBUTOL HYDROCHLORIDE
     Indication: TUBERCULOSIS
     Route: 048
     Dates: start: 20170816, end: 20180329

REACTIONS (2)
  - Chronic respiratory failure [Fatal]
  - Bronchiectasis [Fatal]

NARRATIVE: CASE EVENT DATE: 20180330
